FAERS Safety Report 9162488 (Version 11)
Quarter: 2014Q3

REPORT INFORMATION
  Report Type: Spontaneous
  Country: US (occurrence: US)
  Receive Date: 20130314
  Receipt Date: 20140827
  Transmission Date: 20150326
  Serious: Yes (Death, Hospitalization, Disabling, Other)
  Sender: FDA-Public Use
  Company Number: US-009507513-1008USA00396

PATIENT
  Sex: Female
  Weight: 60.32 kg

DRUGS (4)
  1. FOSAMAX [Suspect]
     Active Substance: ALENDRONATE SODIUM
     Indication: OSTEOPOROSIS
     Dosage: 40 MG, BIW 3 DAYS APART
     Route: 048
     Dates: start: 20010122
  2. FOSAMAX [Suspect]
     Active Substance: ALENDRONATE SODIUM
     Dosage: UNK
     Route: 048
     Dates: start: 199609
  3. FOSAMAX [Suspect]
     Active Substance: ALENDRONATE SODIUM
     Indication: OSTEOPENIA
     Dosage: 70 MG, QW
     Route: 048
     Dates: start: 20020722
  4. CALCIUM (UNSPECIFIED) [Concomitant]
     Active Substance: CALCIUM
     Indication: OSTEOPOROSIS
     Dosage: UNK UNK, TID
     Dates: start: 1972

REACTIONS (84)
  - Myocardial infarction [Unknown]
  - Pancreatic carcinoma [Unknown]
  - Macular degeneration [Unknown]
  - Mitral valve incompetence [Unknown]
  - Cystocele repair [Unknown]
  - Spinal fracture [Unknown]
  - Vertebroplasty [Unknown]
  - Osteoporosis [Unknown]
  - Vitamin D deficiency [Unknown]
  - Fall [Unknown]
  - Chronic obstructive pulmonary disease [Not Recovered/Not Resolved]
  - Dry eye [Unknown]
  - Cystitis [Unknown]
  - Pelvic fracture [Recovering/Resolving]
  - Coronary angioplasty [Unknown]
  - Uterine prolapse [Unknown]
  - Urinary tract infection [Unknown]
  - Weight decreased [Unknown]
  - Oophorectomy [Unknown]
  - Femur fracture [Not Recovered/Not Resolved]
  - Arteriosclerosis [Unknown]
  - Skin disorder [Unknown]
  - Tonsillectomy [Unknown]
  - Eosinophil count increased [Unknown]
  - Gastrooesophageal reflux disease [Unknown]
  - Pain in jaw [Unknown]
  - Pruritus [Unknown]
  - Femur fracture [Not Recovered/Not Resolved]
  - Osteoporosis [Not Recovered/Not Resolved]
  - Stress fracture [Not Recovered/Not Resolved]
  - Low turnover osteopathy [Not Recovered/Not Resolved]
  - Adverse event [Unknown]
  - Dementia [Unknown]
  - Large intestine polyp [Unknown]
  - Skin neoplasm excision [Unknown]
  - Rectal prolapse [Unknown]
  - Inappropriate schedule of drug administration [Unknown]
  - Glucose tolerance impaired [Unknown]
  - Back pain [Unknown]
  - Drug ineffective [Unknown]
  - Femur fracture [Not Recovered/Not Resolved]
  - Coronary artery bypass [Unknown]
  - Coronary artery disease [Unknown]
  - Appendicitis perforated [Unknown]
  - Fracture nonunion [Unknown]
  - Cataract [Unknown]
  - Cataract operation [Unknown]
  - Memory impairment [Unknown]
  - Lumbar spinal stenosis [Unknown]
  - Dysaesthesia [Unknown]
  - Appendicectomy [Unknown]
  - Thrombosis [Unknown]
  - Hypertriglyceridaemia [Unknown]
  - Dehydration [Unknown]
  - Endometriosis ablation [Unknown]
  - Open reduction of fracture [Not Recovered/Not Resolved]
  - Death [Fatal]
  - Basal cell carcinoma [Unknown]
  - Jaundice cholestatic [Unknown]
  - Anaemia of chronic disease [Not Recovered/Not Resolved]
  - Rectocele repair [Unknown]
  - Hypothyroidism [Unknown]
  - Fall [Unknown]
  - Joint crepitation [Unknown]
  - Fall [Unknown]
  - Intervertebral disc protrusion [Unknown]
  - Bladder prolapse [Unknown]
  - Vitamin B12 deficiency [Unknown]
  - Cough [Not Recovered/Not Resolved]
  - Asthma [Unknown]
  - Coronary artery bypass [Unknown]
  - Pancreatic stent placement [Unknown]
  - Finger amputation [Unknown]
  - Compression fracture [Unknown]
  - Depression [Unknown]
  - Insomnia [Unknown]
  - Open reduction of fracture [Not Recovered/Not Resolved]
  - Squamous cell carcinoma [Unknown]
  - Hypercholesterolaemia [Unknown]
  - Hypertension [Unknown]
  - Osteoarthritis [Unknown]
  - Finger amputation [Unknown]
  - Diastolic dysfunction [Unknown]
  - Deep vein thrombosis [Unknown]

NARRATIVE: CASE EVENT DATE: 199609
